FAERS Safety Report 6296962-0 (Version None)
Quarter: 2009Q3

REPORT INFORMATION
  Report Type: 
  Country: None (occurrence: None)
  Receive Date: 20090804
  Receipt Date: 20090723
  Transmission Date: 20100115
  Serious: Yes (Hospitalization)
  Sender: FDA-Public Use
  Company Number: JP-ELI_LILLY_AND_COMPANY-JP200907006986

PATIENT
  Age: 58 Year
  Sex: Female

DRUGS (2)
  1. OLANZAPINE [Suspect]
     Indication: SCHIZOPHRENIA
     Dosage: 20 MG, DAILY (1/D)
     Route: 048
     Dates: end: 20090703
  2. NEOPERIDOL [Concomitant]
     Indication: SCHIZOPHRENIA
     Route: 030

REACTIONS (2)
  - BLOOD GLUCOSE INCREASED [None]
  - CEREBRAL INFARCTION [None]
